FAERS Safety Report 15782983 (Version 1)
Quarter: 2019Q1

REPORT INFORMATION
  Report Type: Spontaneous
  Country: US (occurrence: US)
  Receive Date: 20190102
  Receipt Date: 20190102
  Transmission Date: 20190417
  Serious: No
  Sender: FDA-Public Use
  Company Number: US-PERRIGO-17US030841

PATIENT
  Age: 54 Year
  Sex: Female
  Weight: 86.17 kg

DRUGS (4)
  1. ALEVE [Concomitant]
     Active Substance: NAPROXEN SODIUM
     Indication: JOINT INJURY
     Dosage: UNKNOWN, PRN
     Route: 065
     Dates: start: 201611
  2. MICONAZOLE. [Concomitant]
     Active Substance: MICONAZOLE
     Indication: VULVOVAGINAL PRURITUS
     Dosage: UNK, TWICE DAIY AS NEEDED
     Route: 061
     Dates: end: 20171201
  3. TIOCONAZOLE. [Suspect]
     Active Substance: TIOCONAZOLE
     Indication: VULVOVAGINAL PRURITUS
  4. TIOCONAZOLE. [Suspect]
     Active Substance: TIOCONAZOLE
     Indication: VULVOVAGINAL MYCOTIC INFECTION
     Dosage: 300 MG, SINGLE
     Route: 067
     Dates: start: 20171114, end: 20171114

REACTIONS (3)
  - Drug ineffective [Unknown]
  - Vulvovaginal burning sensation [Recovered/Resolved]
  - Condition aggravated [Recovered/Resolved]

NARRATIVE: CASE EVENT DATE: 20171114
